FAERS Safety Report 7231960-1 (Version None)
Quarter: 2011Q1

REPORT INFORMATION
  Report Type: 
  Country: None (occurrence: None)
  Receive Date: 20110118
  Receipt Date: 20110105
  Transmission Date: 20110831
  Serious: Yes (Other)
  Sender: FDA-Public Use
  Company Number: IR-GENENTECH-310466

PATIENT
  Sex: Female

DRUGS (1)
  1. MABTHERA [Suspect]
     Indication: SYSTEMIC LUPUS ERYTHEMATOSUS
     Dosage: UNK
     Route: 042
     Dates: start: 20100902, end: 20100902

REACTIONS (5)
  - PYREXIA [None]
  - BLOOD CREATININE INCREASED [None]
  - CHILLS [None]
  - RESPIRATORY DISTRESS [None]
  - COUGH [None]
